FAERS Safety Report 4599788-9 (Version None)
Quarter: 2005Q1

REPORT INFORMATION
  Report Type: 
  Country: None (occurrence: None)
  Receive Date: 20050303
  Receipt Date: 20050210
  Transmission Date: 20050727
  Serious: Yes (Death)
  Sender: FDA-Public Use
  Company Number: USA050290523

PATIENT
  Age: 65 Year
  Sex: Female

DRUGS (2)
  1. ZYPREXA [Suspect]
     Dosage: 10 MG
  2. ZYPREXA [Suspect]

REACTIONS (4)
  - ABNORMAL BEHAVIOUR [None]
  - AGITATION [None]
  - CIRCULATORY COLLAPSE [None]
  - MYOCARDIAL INFARCTION [None]
